FAERS Safety Report 6057250-0 (Version None)
Quarter: 2009Q1

REPORT INFORMATION
  Report Type: 
  Country: None (occurrence: None)
  Receive Date: 20090129
  Receipt Date: 20080527
  Transmission Date: 20090719
  Serious: No
  Sender: FDA-Public Use
  Company Number: A0731519A

PATIENT
  Sex: Male

DRUGS (7)
  1. WELLBUTRIN [Suspect]
     Indication: DEPRESSION
     Route: 048
  2. PAXIL [Suspect]
     Indication: DEPRESSION
     Route: 048
  3. ZOLOFT [Suspect]
     Indication: DEPRESSION
     Route: 048
  4. BUSPAR [Suspect]
     Indication: DEPRESSION
     Route: 048
  5. TRAZODONE HCL [Suspect]
     Indication: DEPRESSION
     Route: 048
  6. NEURONTIN [Suspect]
     Indication: DEPRESSION
     Route: 048
  7. SALVIA HERBA [Concomitant]
     Indication: DEPRESSION

REACTIONS (1)
  - DRUG INEFFECTIVE [None]
